FAERS Safety Report 8991861 (Version 3)
Quarter: 2013Q1

REPORT INFORMATION
  Report Type: Spontaneous
  Country: FR (occurrence: FR)
  Receive Date: 20121231
  Receipt Date: 20130301
  Transmission Date: 20140127
  Serious: Yes (Other)
  Sender: FDA-Public Use
  Company Number: FR-JNJFOC-20121213520

PATIENT
  Age: 68 Year
  Sex: Male
  Weight: 82 kg

DRUGS (5)
  1. XARELTO [Suspect]
     Indication: THROMBOSIS PROPHYLAXIS
     Route: 048
     Dates: end: 20121203
  2. XARELTO [Suspect]
     Indication: HIP ARTHROPLASTY
     Route: 048
     Dates: end: 20121203
  3. KARDEGIC [Suspect]
     Indication: PRODUCT USED FOR UNKNOWN INDICATION
     Route: 065
  4. CANDESARTAN [Concomitant]
     Route: 065
  5. SPIRIVA [Concomitant]
     Route: 055

REACTIONS (3)
  - Anaemia [Recovering/Resolving]
  - Leukocytosis [Recovered/Resolved]
  - Thrombocytosis [Recovered/Resolved]
